FAERS Safety Report 5340923-2 (Version None)
Quarter: 2007Q2

REPORT INFORMATION
  Report Type: 
  Country: None (occurrence: None)
  Receive Date: 20070405
  Receipt Date: 20061102
  Transmission Date: 20071010
  Serious: No
  Sender: FDA-Public Use
  Company Number: US200605003812

PATIENT
  Age: 43 Year
  Sex: Male

DRUGS (4)
  1. STRATTERA [Suspect]
     Indication: ATTENTION DEFICIT/HYPERACTIVITY DISORDER
     Dosage: 40 MG, DAILY (1/D)
     Dates: start: 20040101, end: 20040101
  2. CYMBALTA [Suspect]
     Indication: ATTENTION DEFICIT/HYPERACTIVITY DISORDER
     Dosage: 60 M, DAILY (1/D)
     Dates: start: 20050101
  3. BENAZEPRIL (BENAZEPRIL) [Concomitant]
  4. ACYCLOVIR [Concomitant]

REACTIONS (4)
  - DRUG INEFFECTIVE [None]
  - HOSTILITY [None]
  - MOOD ALTERED [None]
  - SARCOIDOSIS [None]
